FAERS Safety Report 19841942 (Version 1)
Quarter: 2021Q3

REPORT INFORMATION
  Report Type: Spontaneous
  Country: DE (occurrence: DE)
  Receive Date: 20210916
  Receipt Date: 20210916
  Transmission Date: 20211014
  Serious: Yes (Hospitalization)
  Sender: FDA-Public Use
  Company Number: DE-TEVA-2021-DE-1951950

PATIENT
  Age: 75 Year
  Sex: Female
  Weight: 79 kg

DRUGS (5)
  1. TORASEMID [Concomitant]
     Active Substance: TORSEMIDE
     Dosage: 2.5 MILLIGRAM DAILY; 1?0?0?0
  2. LEVETIRACETAM. [Suspect]
     Active Substance: LEVETIRACETAM
     Dosage: 1 DOSAGE FORMS DAILY; 1?0?0?0
     Route: 065
  3. VALSARTAN. [Concomitant]
     Active Substance: VALSARTAN
     Dosage: 160 MILLIGRAM DAILY; 0?0?1?0
  4. LEVOTHYROXIN?NATRIUM [Concomitant]
     Active Substance: LEVOTHYROXINE SODIUM
     Dosage: 100 MILLIGRAM DAILY; 0?0?1?0
  5. BISOPROLOL [Concomitant]
     Active Substance: BISOPROLOL
     Dosage: 5 MILLIGRAM DAILY; 1?0?0?0

REACTIONS (4)
  - Fall [Unknown]
  - Product administration error [Unknown]
  - Haematoma [Unknown]
  - Retrograde amnesia [Unknown]
